FAERS Safety Report 9519470 (Version 1)
Quarter: 2013Q3

REPORT INFORMATION
  Report Type: Spontaneous
  Country: US (occurrence: None)
  Receive Date: 20130911
  Receipt Date: 20130911
  Transmission Date: 20140515
  Serious: Yes (Disabling, Other)
  Sender: FDA-Public Use
  Company Number: None

PATIENT
  Age: 48 Year
  Sex: Female

DRUGS (3)
  1. LYRICA [Suspect]
     Indication: FIBROMYALGIA
     Dosage: 1 TO 2 TID ORAL
     Route: 048
     Dates: start: 20111201, end: 20120301
  2. NEURONTIN [Suspect]
     Indication: FIBROMYALGIA
     Dosage: 1TID ORAL
     Route: 048
     Dates: start: 20120430, end: 20130910
  3. XANAX [Concomitant]

REACTIONS (2)
  - Amnesia [None]
  - Visual impairment [None]
